FAERS Safety Report 4293748-3 (Version None)
Quarter: 2004Q1

REPORT INFORMATION
  Report Type: 
  Country: None (occurrence: None)
  Receive Date: 20040212
  Receipt Date: 20040203
  Transmission Date: 20041129
  Serious: Yes (Death, Life-Threatening)
  Sender: FDA-Public Use
  Company Number: FR-GLAXOSMITHKLINE-B0322038A

PATIENT
  Age: 75 Year
  Sex: Female
  Weight: 57 kg

DRUGS (3)
  1. ZELITREX [Suspect]
     Indication: FACIAL PALSY
     Dosage: 1G THREE TIMES PER DAY
     Route: 048
     Dates: start: 20030831, end: 20030903
  2. LAROXYL [Suspect]
     Indication: FACIAL PALSY
     Dosage: 25MG PER DAY
     Route: 048
     Dates: start: 20030831, end: 20030903
  3. CORTANCYL [Suspect]
     Indication: FACIAL PALSY
     Dosage: 60MG PER DAY
     Route: 048
     Dates: start: 20030831, end: 20030903

REACTIONS (8)
  - ABDOMINAL PAIN UPPER [None]
  - ABNORMAL BEHAVIOUR [None]
  - AGITATION [None]
  - CARDIOVASCULAR DISORDER [None]
  - DELIRIUM [None]
  - PAIN [None]
  - PERSECUTORY DELUSION [None]
  - SUDDEN DEATH [None]
